APPROVED DRUG PRODUCT: BIJUVA
Active Ingredient: ESTRADIOL; PROGESTERONE
Strength: 0.5MG;100MG
Dosage Form/Route: CAPSULE;ORAL
Application: N210132 | Product #002
Applicant: MAYNE PHARMA LLC
Approved: Dec 28, 2021 | RLD: Yes | RS: No | Type: RX

PATENTS:
Patent 11793819 | Expires: Nov 21, 2032
Patent 11033626 | Expires: Nov 21, 2032
Patent 10206932 | Expires: Nov 21, 2032
Patent 9301920 | Expires: Nov 21, 2032
Patent 9114146 | Expires: Nov 21, 2032
Patent 9114145 | Expires: Nov 21, 2032
Patent 8933059 | Expires: Nov 21, 2032
Patent 8846649 | Expires: Nov 21, 2032
Patent 8846648 | Expires: Nov 21, 2032
Patent 10675288 | Expires: Nov 21, 2032
Patent 8987237 | Expires: Nov 21, 2032
Patent 11166963 | Expires: Nov 21, 2032
Patent 8993549 | Expires: Nov 21, 2032
Patent 8633178 | Expires: Nov 21, 2032
Patent 10052386 | Expires: Nov 21, 2032
Patent 11865179 | Expires: Nov 21, 2032
Patent 8993548 | Expires: Nov 21, 2032